FAERS Safety Report 16307397 (Version 1)
Quarter: 2019Q2

REPORT INFORMATION
  Report Type: Spontaneous
  Country: FR (occurrence: FR)
  Receive Date: 20190514
  Receipt Date: 20190514
  Transmission Date: 20190711
  Serious: Yes (Hospitalization)
  Sender: FDA-Public Use
  Company Number: FR-ROCHE-2315591

PATIENT
  Age: 79 Year
  Sex: Female
  Weight: 63.4 kg

DRUGS (11)
  1. IMBRUVICA [Suspect]
     Active Substance: IBRUTINIB
     Indication: B-CELL LYMPHOMA
     Dosage: 560 MG PAR JOUR
     Route: 048
     Dates: start: 20190312, end: 20190325
  2. NORSET [Concomitant]
     Active Substance: MIRTAZAPINE
  3. ZYRTEC [Concomitant]
     Active Substance: CETIRIZINE HYDROCHLORIDE
  4. LEVOTHYROX [Concomitant]
     Active Substance: LEVOTHYROXINE
  5. BACTRIM [Suspect]
     Active Substance: SULFAMETHOXAZOLE\TRIMETHOPRIM
     Indication: INFECTION PROPHYLAXIS
     Route: 048
     Dates: start: 20190312, end: 20190325
  6. OGASTORO [Concomitant]
     Active Substance: LANSOPRAZOLE
  7. ZELITREX [Suspect]
     Active Substance: VALACYCLOVIR HYDROCHLORIDE
     Indication: INFECTION PROPHYLAXIS
     Route: 048
     Dates: start: 20190312
  8. SEROPLEX [Concomitant]
     Active Substance: ESCITALOPRAM OXALATE
  9. PROPRANOLOL [Concomitant]
     Active Substance: PROPRANOLOL HYDROCHLORIDE
  10. TEMESTA [LORAZEPAM] [Concomitant]
     Active Substance: LORAZEPAM
  11. RITUXIMAB. [Suspect]
     Active Substance: RITUXIMAB
     Indication: B-CELL LYMPHOMA
     Route: 041
     Dates: start: 20190319, end: 20190319

REACTIONS (3)
  - Rash [Recovering/Resolving]
  - Arthralgia [Recovering/Resolving]
  - Pruritus [Recovering/Resolving]

NARRATIVE: CASE EVENT DATE: 20190324
